FAERS Safety Report 7145876-2 (Version None)
Quarter: 2010Q4

REPORT INFORMATION
  Report Type: 
  Country: None (occurrence: None)
  Receive Date: 20101208
  Receipt Date: 20101203
  Transmission Date: 20110411
  Serious: Yes (Hospitalization)
  Sender: FDA-Public Use
  Company Number: B0687498A

PATIENT
  Sex: Female

DRUGS (7)
  1. VALTREX [Suspect]
     Dosage: 3000MG PER DAY
     Route: 048
     Dates: start: 20101126, end: 20101201
  2. LOXOPROFEN [Suspect]
     Route: 048
  3. GASTER [Suspect]
     Route: 048
  4. BLOPRESS [Suspect]
     Route: 048
  5. LIPITOR [Suspect]
     Route: 048
  6. DEPAS [Suspect]
     Route: 048
  7. MYSLEE [Suspect]
     Route: 048

REACTIONS (2)
  - MALAISE [None]
  - RENAL IMPAIRMENT [None]
